FAERS Safety Report 24793893 (Version 1)
Quarter: 2024Q4

REPORT INFORMATION
  Report Type: Spontaneous
  Country: US (occurrence: None)
  Receive Date: 20241230
  Receipt Date: 20241230
  Transmission Date: 20250114
  Serious: Yes (Other)
  Sender: Public
  Company Number: None

PATIENT
  Age: 43 Year
  Sex: Female
  Weight: 78.75 kg

DRUGS (7)
  1. CLOSYS [Suspect]
     Active Substance: SODIUM FLUORIDE
     Indication: Dental cleaning
     Dosage: FREQUENCY : TWICE A DAY;?OTHER ROUTE : ORAL TOOTH BRUSHING;?
     Route: 050
     Dates: start: 20241222, end: 20241230
  2. Sprinoloactone [Concomitant]
  3. NORVASC [Concomitant]
     Active Substance: AMLODIPINE BESYLATE
  4. BOTOX [Concomitant]
     Active Substance: ONABOTULINUMTOXINA
  5. IBUPROFEN [Concomitant]
     Active Substance: IBUPROFEN
  6. VITAMIN B COMPLEX [Concomitant]
     Active Substance: CYANOCOBALAMIN\DEXPANTHENOL\NIACINAMIDE\PYRIDOXINE HYDROCHLORIDE\RIBOFLAVIN 5^-PHOSPHATE SODIUM\THIA
  7. ALIGN [Concomitant]
     Active Substance: BIFIDOBACTERIUM LONGUM SUBSP. INFANTIS

REACTIONS (6)
  - Stomatitis [None]
  - Oral mucosal exfoliation [None]
  - Paraesthesia [None]
  - Hypoaesthesia [None]
  - Mouth swelling [None]
  - Product formulation issue [None]

NARRATIVE: CASE EVENT DATE: 20241222
